FAERS Safety Report 6063428-2 (Version None)
Quarter: 2009Q1

REPORT INFORMATION
  Report Type: 
  Country: None (occurrence: None)
  Receive Date: 20090203
  Receipt Date: 20090128
  Transmission Date: 20090719
  Serious: No
  Sender: FDA-Public Use
  Company Number: US-B.I. PHARMACEUTICALS,INC./RIDGEFIELD-2009-BP-01123BP

PATIENT
  Sex: Male

DRUGS (12)
  1. SPIRIVA [Suspect]
     Indication: EMPHYSEMA
     Dosage: 18MCG
     Route: 055
     Dates: start: 20060920
  2. SPIRIVA [Suspect]
     Route: 055
     Dates: start: 20080101
  3. VERAPAMIL [Concomitant]
     Indication: HYPERTENSION
     Route: 048
  4. KLOR-CON [Concomitant]
     Indication: ELECTROLYTE SUBSTITUTION THERAPY
     Route: 048
     Dates: start: 19850101
  5. TERAZOSIN HCL [Concomitant]
     Dosage: 5MG
     Route: 048
     Dates: start: 19850101
  6. LOVASTATIN [Concomitant]
     Indication: BLOOD CHOLESTEROL INCREASED
     Dosage: 20MG
     Route: 048
  7. ALLOPURINOL [Concomitant]
     Indication: GOUTY ARTHRITIS
     Route: 048
  8. OMEPRAZOLE [Concomitant]
     Indication: ABDOMINAL DISCOMFORT
     Route: 048
     Dates: start: 19900101
  9. MECLIZINE [Concomitant]
     Indication: DIZZINESS
     Route: 048
  10. MECLIZINE [Concomitant]
     Indication: BALANCE DISORDER
  11. BABY ASC [Concomitant]
     Indication: PROPHYLAXIS
     Dosage: 81MG
     Route: 048
     Dates: start: 20060101
  12. ALBUTEROL SULATE [Concomitant]
     Indication: EMPHYSEMA
     Route: 055
     Dates: start: 19850101

REACTIONS (1)
  - OESOPHAGEAL PAIN [None]
